FAERS Safety Report 4428487-9 (Version None)
Quarter: 2004Q3

REPORT INFORMATION
  Report Type: 
  Country: None (occurrence: None)
  Receive Date: 20040816
  Receipt Date: 20040730
  Transmission Date: 20050211
  Serious: Yes (Hospitalization)
  Sender: FDA-Public Use
  Company Number: 0104-1789

PATIENT
  Age: 55 Year
  Sex: Female
  Weight: 86.1834 kg

DRUGS (2)
  1. ADVICOR [Suspect]
     Indication: BLOOD CHOLESTEROL INCREASED
     Dosage: 1 TABLET(S) QHS PO
     Route: 048
     Dates: start: 20040729, end: 20040729
  2. UNKNOWN THYROID MEDICATION [Concomitant]

REACTIONS (1)
  - NEPHROLITHIASIS [None]
